FAERS Safety Report 12662484 (Version 1)
Quarter: 2016Q3

REPORT INFORMATION
  Report Type: Spontaneous
  Country: US (occurrence: US)
  Receive Date: 20160817
  Receipt Date: 20160817
  Transmission Date: 20161109
  Serious: No
  Sender: FDA-Public Use
  Company Number: US-TEVA-679807ACC

PATIENT
  Sex: Female

DRUGS (1)
  1. PLAN B ONE-STEP [Suspect]
     Active Substance: LEVONORGESTREL
     Indication: POST COITAL CONTRACEPTION

REACTIONS (6)
  - Nipple swelling [Unknown]
  - Weight increased [Unknown]
  - Abnormal dreams [Unknown]
  - Abdominal distension [Unknown]
  - Nipple disorder [Unknown]
  - Menstruation delayed [Unknown]
